FAERS Safety Report 14924304 (Version 1)
Quarter: 2018Q2

REPORT INFORMATION
  Report Type: Spontaneous
  Country: US (occurrence: US)
  Receive Date: 20180522
  Receipt Date: 20180522
  Transmission Date: 20180711
  Serious: Yes (Death, Life-Threatening)
  Sender: FDA-Public Use
  Company Number: US-PROCTER+GAMBLE-GS18058915

PATIENT
  Age: 50 Year
  Sex: Male
  Weight: 119 kg

DRUGS (6)
  1. MORPHINE [Suspect]
     Active Substance: MORPHINE
  2. DIPHENHYDRAMINE HCL [Suspect]
     Active Substance: DIPHENHYDRAMINE HYDROCHLORIDE
  3. METAMFETAMINE [Suspect]
     Active Substance: METHAMPHETAMINE
  4. AMFETAMINE [Suspect]
     Active Substance: AMPHETAMINE
  5. DIAZEPAM. [Suspect]
     Active Substance: DIAZEPAM
  6. NORDAZEPAM [Suspect]
     Active Substance: NORDAZEPAM

REACTIONS (2)
  - Accidental overdose [Fatal]
  - Toxicity to various agents [Fatal]
